FAERS Safety Report 4632506-4 (Version None)
Quarter: 2005Q2

REPORT INFORMATION
  Report Type: 
  Country: None (occurrence: None)
  Receive Date: 20050411
  Receipt Date: 20050330
  Transmission Date: 20051028
  Serious: Yes (Hospitalization)
  Sender: FDA-Public Use
  Company Number: 2005051886

PATIENT
  Age: 70 Year
  Sex: Male
  Weight: 90.7194 kg

DRUGS (17)
  1. BEN-GAY ULTRA (MENTHOL, CAMPHOR, METHYL SALICYLATE) [Suspect]
     Indication: PAIN
     Dosage: ^HEAVY LAYER^ 3-5 TIMES DAILY PRN , TOPICAL
     Route: 061
     Dates: end: 20050301
  2. METFORMIN HYDROCHLORIDE/ROSIGLITAZONE (METFORMIN HYDROCHLORIDE, ROSIGL [Concomitant]
  3. KARVEA HCT (HYDROCHLOROTHIAZIDE, IRBESARTAN) [Concomitant]
  4. GABAPENTIN [Concomitant]
  5. TOCOPHEROL (TOCOPHEROL) [Concomitant]
  6. VITAMIN B NOS (VITAMIN B NOS) [Concomitant]
  7. UBIDECARENONE (UBIDECARENONE) [Concomitant]
  8. POTASSIUM ACETATE [Concomitant]
  9. ZINC (ZINC) [Concomitant]
  10. GINKO BILOBA (GINKO BILOBA) [Concomitant]
  11. THIOCTIC ACID (THIOCTIC ACID) [Concomitant]
  12. SELENIUM (SELENIUM) [Concomitant]
  13. TRIOBE (CYANOCOBALAMIN , FOLIC ACID, PYRIDOXINE) [Concomitant]
  14. CARVEDILOL [Concomitant]
  15. IBUPROFEN [Concomitant]
  16. ATORVASTATIN CALCIUM [Concomitant]
  17. MAGNESIUM (MAGNESIUM) [Concomitant]

REACTIONS (5)
  - AORTIC DISORDER [None]
  - APPLICATION SITE ERYTHEMA [None]
  - BLOOD DISORDER [None]
  - HAEMOGLOBIN DECREASED [None]
  - ILL-DEFINED DISORDER [None]
